FAERS Safety Report 24791399 (Version 2)
Quarter: 2025Q1

REPORT INFORMATION
  Report Type: Spontaneous
  Country: AU (occurrence: AU)
  Receive Date: 20241231
  Receipt Date: 20250106
  Transmission Date: 20250409
  Serious: Yes (Other)
  Sender: NOVO NORDISK
  Company Number: AU-NOVOPROD-1341987

PATIENT
  Sex: Female

DRUGS (3)
  1. WEGOVY [Suspect]
     Active Substance: SEMAGLUTIDE
  2. WEGOVY [Suspect]
     Active Substance: SEMAGLUTIDE
     Indication: Product used for unknown indication
  3. WEGOVY [Suspect]
     Active Substance: SEMAGLUTIDE
     Dates: end: 20241208

REACTIONS (6)
  - Unwanted pregnancy [Unknown]
  - Adverse drug reaction [Unknown]
  - Maternal exposure during pregnancy [Recovered/Resolved]
  - Product use issue [Recovered/Resolved]
  - Drug titration error [Recovered/Resolved]
  - Product use issue [Recovered/Resolved]
